FAERS Safety Report 6265320-7 (Version None)
Quarter: 2009Q3

REPORT INFORMATION
  Report Type: 
  Country: None (occurrence: None)
  Receive Date: 20090713
  Receipt Date: 20090630
  Transmission Date: 20100115
  Serious: Yes (Other)
  Sender: FDA-Public Use
  Company Number: SI-ELI_LILLY_AND_COMPANY-SI200907000701

PATIENT

DRUGS (3)
  1. GEMZAR [Suspect]
     Dosage: 250 MG/M2 IN 6 HOURS, DAYS 1 AND 8 OF 21 DAY CYCLE
     Route: 042
  2. CISPLATIN [Concomitant]
     Indication: NON-SMALL CELL LUNG CANCER
     Dosage: 75 MG/M2, ON DAY 2 OF 21 DAY CYCLE
     Route: 042
  3. ANTIEMETICS AND ANTINAUSEANTS [Concomitant]

REACTIONS (1)
  - NEPHROPATHY TOXIC [None]
